FAERS Safety Report 9934075 (Version 1)
Quarter: 2014Q1

REPORT INFORMATION
  Report Type: Report from Study
  Country: US (occurrence: US)
  Receive Date: 20140228
  Receipt Date: 20140228
  Transmission Date: 20141002
  Serious: No
  Sender: FDA-Public Use
  Company Number: US-ABBVIE-14P-163-1197097-00

PATIENT
  Sex: Male
  Weight: 118.04 kg

DRUGS (8)
  1. ANDROGEL [Suspect]
     Indication: BLOOD TESTOSTERONE DECREASED
     Route: 061
     Dates: start: 201401
  2. ANDROGEL [Suspect]
     Route: 061
     Dates: start: 2012, end: 201401
  3. LOPID [Concomitant]
     Indication: BLOOD CHOLESTEROL INCREASED
  4. PRILOSEC [Concomitant]
     Indication: GASTROOESOPHAGEAL REFLUX DISEASE
  5. METFORMIN [Concomitant]
     Indication: TYPE 2 DIABETES MELLITUS
  6. SINGULAIR [Concomitant]
     Indication: SEASONAL ALLERGY
  7. DIOVAN [Concomitant]
     Indication: HYPERTENSION
  8. LEXAPRO [Concomitant]
     Indication: DEPRESSION

REACTIONS (4)
  - Off label use [Unknown]
  - Blood pressure increased [Not Recovered/Not Resolved]
  - Blood testosterone decreased [Not Recovered/Not Resolved]
  - Sleep apnoea syndrome [Not Recovered/Not Resolved]
